FAERS Safety Report 10108345 (Version 3)
Quarter: 2014Q2

REPORT INFORMATION
  Report Type: Spontaneous
  Country: JP (occurrence: JP)
  Receive Date: 20140425
  Receipt Date: 20140602
  Transmission Date: 20141212
  Serious: Yes (Death)
  Sender: FDA-Public Use
  Company Number: JP-ROCHE-1389570

PATIENT
  Age: 82 Year
  Sex: Female

DRUGS (8)
  1. LUCENTIS [Suspect]
     Indication: DIABETIC RETINAL OEDEMA
     Route: 050
     Dates: start: 20140313
  2. EUGLUCON [Concomitant]
  3. PRAVASTATIN SODIUM [Concomitant]
  4. VOGLIBOSE [Concomitant]
  5. PIOGLITAZONE [Concomitant]
  6. OLMETEC [Concomitant]
  7. MECOBALAMIN [Concomitant]
  8. EPALRESTAT [Concomitant]

REACTIONS (2)
  - Death [Fatal]
  - Glycosylated haemoglobin increased [Unknown]
